FAERS Safety Report 6698437-3 (Version None)
Quarter: 2010Q2

REPORT INFORMATION
  Report Type: 
  Country: None (occurrence: None)
  Receive Date: 20100427
  Receipt Date: 20100420
  Transmission Date: 20101027
  Serious: Yes (Hospitalization, Other)
  Sender: FDA-Public Use
  Company Number: CN-ROCHE-698447

PATIENT
  Age: 60 Year
  Sex: Female

DRUGS (4)
  1. PEGINTERFERON ALFA-2A [Suspect]
     Indication: HEPATITIS C
     Dosage: STRENGTH REPORTED AS 135 UG.
     Route: 058
     Dates: start: 20091101, end: 20100301
  2. PEGINTERFERON ALFA-2A [Suspect]
     Dosage: STRENGTH REPORTED AS 180 UG.
     Route: 058
     Dates: start: 20100301, end: 20100416
  3. PEGINTERFERON ALFA-2A [Suspect]
     Dosage: STRENGTH REPORTED AS 135 UG.
     Route: 058
     Dates: start: 20100417
  4. RIBAVIRIN [Concomitant]
     Indication: HEPATITIS C
     Route: 048
     Dates: start: 20091101

REACTIONS (4)
  - ECZEMA [None]
  - NEUTROPHIL COUNT DECREASED [None]
  - VENTRICULAR EXTRASYSTOLES [None]
  - WHITE BLOOD CELL COUNT DECREASED [None]
